FAERS Safety Report 25722427 (Version 2)
Quarter: 2025Q3

REPORT INFORMATION
  Report Type: Report from Study
  Country: KR (occurrence: KR)
  Receive Date: 20250825
  Receipt Date: 20250826
  Transmission Date: 20251021
  Serious: Yes (Other)
  Sender: PFIZER
  Company Number: KR-ONO-2025KR011704

PATIENT
  Age: 77 Year
  Sex: Male
  Weight: 60 kg

DRUGS (30)
  1. BRAFTOVI [Suspect]
     Active Substance: ENCORAFENIB
     Indication: Colon cancer
     Dosage: 225 MG, EVERYDAY
     Route: 048
     Dates: start: 20250616
  2. BRAFTOVI [Suspect]
     Active Substance: ENCORAFENIB
     Dosage: 150 MG, EVERYDAY
     Route: 048
     Dates: start: 20250620
  3. BRAFTOVI [Suspect]
     Active Substance: ENCORAFENIB
     Dosage: 150 MG, EVERYDAY
     Route: 048
     Dates: start: 20250704, end: 20250721
  4. BRAFTOVI [Suspect]
     Active Substance: ENCORAFENIB
     Dosage: 150 MG, EVERYDAY
     Route: 048
     Dates: start: 20250804
  5. CETUXIMAB [Suspect]
     Active Substance: CETUXIMAB
     Indication: Colon cancer
     Route: 042
     Dates: start: 20250616
  6. TRAMADOL HYDROCHLORIDE [Suspect]
     Active Substance: TRAMADOL HYDROCHLORIDE
  7. HUMALOG [Concomitant]
     Active Substance: INSULIN LISPRO
     Indication: Diabetes mellitus
     Dosage: 100 IU/ML, EVERYDAY
     Route: 058
     Dates: start: 20250616, end: 20250620
  8. HUMALOG [Concomitant]
     Active Substance: INSULIN LISPRO
     Dosage: 300 IU/3 ML, EVERYDAY
     Route: 058
     Dates: start: 20250705
  9. EZETIMIBE\ROSUVASTATIN [Concomitant]
     Active Substance: EZETIMIBE\ROSUVASTATIN
     Indication: Hyperlipidaemia
     Dosage: 10 MG, EVERYDAY
     Route: 048
     Dates: start: 20250615, end: 20250626
  10. EZETIMIBE\ROSUVASTATIN [Concomitant]
     Active Substance: EZETIMIBE\ROSUVASTATIN
     Dosage: 10 MG, EVERYDAY
     Route: 048
     Dates: start: 20250629, end: 20250707
  11. LASIX [Concomitant]
     Active Substance: FUROSEMIDE
     Indication: Hypertension
     Dosage: 1 DF, EVERYDAY
     Route: 042
     Dates: start: 20250618, end: 20250618
  12. NICARDIPINE HYDROCHLORIDE [Concomitant]
     Active Substance: NICARDIPINE HYDROCHLORIDE
     Indication: Hypertension
     Dosage: 10 ML, EVERYDAY
     Route: 042
     Dates: start: 20250710, end: 20250710
  13. PENIRAMIN [Concomitant]
  14. YUHAN DEXAMETHASONE DISODIUM PHOSPHATE [Concomitant]
  15. URSODIOL [Concomitant]
     Active Substance: URSODIOL
  16. BISOPROLOL FUMARATE [Concomitant]
     Active Substance: BISOPROLOL FUMARATE
  17. OMAPONE PERI [Concomitant]
  18. GALANTAMINE HYDROBROMIDE [Concomitant]
     Active Substance: GALANTAMINE HYDROBROMIDE
  19. MEGACE F [Concomitant]
  20. CHOLINE ALFOSCERATE [Concomitant]
     Active Substance: CHOLINE ALFOSCERATE
  21. CLOPIDOGREL BISULFATE [Concomitant]
     Active Substance: CLOPIDOGREL BISULFATE
  22. FEXUCLUE [Concomitant]
  23. KEPIRAM [Concomitant]
  24. LINAGLIPTIN\METFORMIN HYDROCHLORIDE [Concomitant]
     Active Substance: LINAGLIPTIN\METFORMIN HYDROCHLORIDE
  25. ACETAMINOPHEN\TRAMADOL [Concomitant]
     Active Substance: ACETAMINOPHEN\TRAMADOL
  26. MAGMIL S [Concomitant]
  27. TASNA [Concomitant]
  28. CORDARONE [Concomitant]
     Active Substance: AMIODARONE HYDROCHLORIDE
  29. NOREPIRIN [Concomitant]
  30. NORPIN [NOREPINEPHRINE] [Concomitant]

REACTIONS (12)
  - Atrial fibrillation [Recovering/Resolving]
  - Atrial fibrillation [Recovered/Resolved]
  - Wound secretion [Recovered/Resolved]
  - Wound complication [Recovering/Resolving]
  - Abscess [Recovered/Resolved]
  - Hyperhidrosis [Recovered/Resolved]
  - Headache [Recovered/Resolved]
  - Constipation [Recovering/Resolving]
  - Arthralgia [Recovering/Resolving]
  - Pain [Recovering/Resolving]
  - Pyrexia [Recovered/Resolved]
  - Pyrexia [Recovered/Resolved]

NARRATIVE: CASE EVENT DATE: 20250617
